FAERS Safety Report 8947100 (Version 2)
Quarter: 2013Q4

REPORT INFORMATION
  Report Type: Report from Study
  Country: CA (occurrence: CA)
  Receive Date: 20121205
  Receipt Date: 20131007
  Transmission Date: 20140711
  Serious: Yes (Other)
  Sender: FDA-Public Use
  Company Number: CA-ROCHE-1163906

PATIENT
  Sex: Male

DRUGS (8)
  1. OMALIZUMAB [Suspect]
     Indication: ASTHMA
     Route: 058
     Dates: start: 20071030
  2. OMALIZUMAB [Suspect]
     Route: 058
     Dates: start: 20071115
  3. OMALIZUMAB [Suspect]
     Route: 058
     Dates: start: 20121002
  4. OMALIZUMAB [Suspect]
     Route: 058
     Dates: start: 20090414
  5. OMALIZUMAB [Suspect]
     Route: 065
     Dates: start: 20131001
  6. SINGULAIR [Concomitant]
  7. COMBIVENT [Concomitant]
  8. VENTOLIN [Concomitant]

REACTIONS (6)
  - Hypertension [Unknown]
  - Skin plaque [Unknown]
  - Dry skin [Unknown]
  - Heart rate increased [Unknown]
  - Erythema [Unknown]
  - Rash [Unknown]
